FAERS Safety Report 7753213-5 (Version None)
Quarter: 2011Q3

REPORT INFORMATION
  Report Type: 
  Country: None (occurrence: None)
  Receive Date: 20110913
  Receipt Date: 20110902
  Transmission Date: 20111222
  Serious: Yes (Hospitalization)
  Sender: FDA-Public Use
  Company Number: 122857

PATIENT
  Age: 59 Year
  Sex: Female

DRUGS (1)
  1. DAUNORUBICIN HCL [Suspect]
     Indication: ACUTE MYELOID LEUKAEMIA
     Dates: start: 20110629, end: 20110708

REACTIONS (2)
  - OEDEMA PERIPHERAL [None]
  - PULMONARY EMBOLISM [None]
